FAERS Safety Report 4661565-8 (Version None)
Quarter: 2005Q2

REPORT INFORMATION
  Report Type: 
  Country: None (occurrence: None)
  Receive Date: 20050502
  Receipt Date: 20050302
  Transmission Date: 20051028
  Serious: No
  Sender: FDA-Public Use
  Company Number: 200510256US

PATIENT
  Age: 44 Year
  Sex: Female
  Weight: 81.4 kg

DRUGS (3)
  1. KETEK [Suspect]
     Indication: SINUSITIS
     Dosage: 800 MG QD PO
     Route: 048
     Dates: start: 20041208, end: 20041213
  2. ALLEGRA [Concomitant]
  3. FLUTICASONE PROPIONATE (FLONASE) [Concomitant]

REACTIONS (5)
  - BURNING SENSATION [None]
  - DIPLOPIA [None]
  - MOTOR DYSFUNCTION [None]
  - MUSCLE ATROPHY [None]
  - VISION BLURRED [None]
